FAERS Safety Report 21766804 (Version 1)
Quarter: 2022Q4

REPORT INFORMATION
  Report Type: Spontaneous
  Country: FR (occurrence: None)
  Receive Date: 20221222
  Receipt Date: 20221222
  Transmission Date: 20230113
  Serious: Yes (Death)
  Sender: FDA-Public Use
  Company Number: FR-CDN-EMD Serono,a division of EMD Inc.-8198747

PATIENT
  Age: 48 Year
  Sex: Female
  Weight: 58 kg

DRUGS (3)
  1. LEVOTHYROXINE [Suspect]
     Active Substance: LEVOTHYROXINE
     Indication: Thyroidectomy
     Dosage: LEVOTHYROX 75 MCG ALONG WITH HALF DOSAGE FORM OF LEVOTHYROX 25 MCG
     Route: 048
     Dates: start: 20170512, end: 20170627
  2. LEVOTHYROXINE [Suspect]
     Active Substance: LEVOTHYROXINE
     Dosage: DOSAGE WAS DECREASED TO LEVOTHYROX 50 MCG WITH HALF DOSAGE FORM OF LEVOTHYROX 25 MCG
     Route: 048
     Dates: start: 20170627, end: 20170814
  3. MIRENA [Suspect]
     Active Substance: LEVONORGESTREL
     Indication: Contraception
     Route: 015
     Dates: start: 2002, end: 20170814

REACTIONS (20)
  - Death [Fatal]
  - Pulmonary embolism [Fatal]
  - Pain in extremity [Not Recovered/Not Resolved]
  - Asthenia [Not Recovered/Not Resolved]
  - Paraesthesia [Not Recovered/Not Resolved]
  - Stress [Unknown]
  - Disturbance in attention [Unknown]
  - Arthralgia [Unknown]
  - General physical health deterioration [Unknown]
  - Blood thyroid stimulating hormone increased [Unknown]
  - Oropharyngeal pain [Unknown]
  - Beta globulin decreased [Unknown]
  - Flat affect [Unknown]
  - Malaise [Unknown]
  - Limb discomfort [Unknown]
  - Fatigue [Unknown]
  - Anxiety [Unknown]
  - Dyspnoea [Unknown]
  - Thyroxine increased [Unknown]
  - Night sweats [Not Recovered/Not Resolved]

NARRATIVE: CASE EVENT DATE: 20170601
